FAERS Safety Report 17258387 (Version 1)
Quarter: 2020Q1

REPORT INFORMATION
  Report Type: Report from Study
  Country: JP (occurrence: JP)
  Receive Date: 20200110
  Receipt Date: 20200110
  Transmission Date: 20200409
  Serious: No
  Sender: FDA-Public Use
  Company Number: JP-BEH-2019111134

PATIENT
  Age: 43 Year
  Sex: Male
  Weight: 65 kg

DRUGS (10)
  1. IDELVION [Suspect]
     Active Substance: COAGULATION FACTOR IX RECOMBINANT HUMAN
     Indication: PROPHYLAXIS
     Dosage: 4000 INTERNATIONAL UNIT, TOT
     Route: 042
     Dates: start: 20180709, end: 20180709
  2. IDELVION [Suspect]
     Active Substance: COAGULATION FACTOR IX RECOMBINANT HUMAN
     Dosage: 4000 INTERNATIONAL UNIT, TOT
     Route: 042
     Dates: start: 20180813, end: 20180813
  3. IDELVION [Suspect]
     Active Substance: COAGULATION FACTOR IX RECOMBINANT HUMAN
     Dosage: 4000 INTERNATIONAL UNIT, TOT
     Route: 042
     Dates: start: 20181026, end: 20181026
  4. IDELVION [Suspect]
     Active Substance: COAGULATION FACTOR IX RECOMBINANT HUMAN
     Dosage: 4000 INTERNATIONAL UNIT, TOT
     Route: 042
     Dates: start: 20181210, end: 20181210
  5. IDELVION [Suspect]
     Active Substance: COAGULATION FACTOR IX RECOMBINANT HUMAN
     Indication: PROPHYLAXIS
     Dosage: 4000 INTERNATIONAL UNIT, TOT
     Route: 042
     Dates: start: 20180709, end: 20180709
  6. IDELVION [Suspect]
     Active Substance: COAGULATION FACTOR IX RECOMBINANT HUMAN
     Indication: FACTOR IX DEFICIENCY
     Dosage: 4000 INTERNATIONAL UNIT, ONCE IN 18 TO 42 DAYS
     Route: 042
     Dates: start: 20161227, end: 20180618
  7. IDELVION [Suspect]
     Active Substance: COAGULATION FACTOR IX RECOMBINANT HUMAN
     Dosage: 4000 INTERNATIONAL UNIT, TOT
     Route: 042
     Dates: start: 20180813, end: 20180813
  8. IDELVION [Suspect]
     Active Substance: COAGULATION FACTOR IX RECOMBINANT HUMAN
     Dosage: 4000 INTERNATIONAL UNIT, TOT
     Route: 042
     Dates: start: 20181026, end: 20181026
  9. IDELVION [Suspect]
     Active Substance: COAGULATION FACTOR IX RECOMBINANT HUMAN
     Indication: FACTOR IX DEFICIENCY
     Dosage: 4000 INTERNATIONAL UNIT, ONCE IN 18 TO 42 DAYS
     Route: 042
     Dates: start: 20161227, end: 20180618
  10. IDELVION [Suspect]
     Active Substance: COAGULATION FACTOR IX RECOMBINANT HUMAN
     Dosage: 4000 INTERNATIONAL UNIT, TOT
     Route: 042
     Dates: start: 20181210, end: 20181210

REACTIONS (2)
  - Treatment noncompliance [Unknown]
  - No adverse event [Unknown]
